FAERS Safety Report 9769528 (Version 1)
Quarter: 2013Q4

REPORT INFORMATION
  Report Type: Spontaneous
  Country: US (occurrence: US)
  Receive Date: 20131218
  Receipt Date: 20131218
  Transmission Date: 20140711
  Serious: No
  Sender: FDA-Public Use
  Company Number: US-SHIONOGI, INC-2013000312

PATIENT
  Age: 52 Year
  Sex: Female

DRUGS (5)
  1. OSPHENA [Suspect]
     Indication: ATROPHIC VULVOVAGINITIS
     Dosage: 60 MG, QD
     Route: 048
     Dates: start: 20130815, end: 20131009
  2. OSPHENA [Suspect]
     Indication: OFF LABEL USE
  3. SYNTHROID [Concomitant]
     Indication: HYPOTHYROIDISM
     Dosage: UNK
     Route: 065
     Dates: start: 2012
  4. XANAX [Concomitant]
     Indication: SLEEP DISORDER
     Dosage: 0.25 MG, PRN
  5. LIOTHYRONINE SODIUM [Concomitant]
     Indication: PRODUCT USED FOR UNKNOWN INDICATION
     Dosage: 5 ?G, UNK
     Route: 065

REACTIONS (2)
  - Palpitations [Unknown]
  - Off label use [Recovered/Resolved]
